FAERS Safety Report 9529750 (Version 1)
Quarter: 2013Q3

REPORT INFORMATION
  Report Type: Spontaneous
  Country: GR (occurrence: GR)
  Receive Date: 20130917
  Receipt Date: 20130917
  Transmission Date: 20140515
  Serious: Yes (Other)
  Sender: FDA-Public Use
  Company Number: GR-GLAXOSMITHKLINE-B0923051A

PATIENT
  Sex: Female

DRUGS (2)
  1. VALTREX [Suspect]
     Indication: HERPES VIRUS INFECTION
     Dosage: 1000MG THREE TIMES PER DAY
     Route: 048
     Dates: start: 20130910
  2. LONARID [Concomitant]
     Indication: HEADACHE
     Route: 048
     Dates: start: 20130910

REACTIONS (3)
  - Urinary retention [Recovered/Resolved]
  - Flushing [Recovering/Resolving]
  - Feeling hot [Recovering/Resolving]
